FAERS Safety Report 9908426 (Version 1)
Quarter: 2014Q1

REPORT INFORMATION
  Report Type: Spontaneous
  Country: US (occurrence: US)
  Receive Date: 20140219
  Receipt Date: 20140219
  Transmission Date: 20141002
  Serious: Yes (Hospitalization, Other)
  Sender: FDA-Public Use
  Company Number: US-MALLINCKRODT-T201401231

PATIENT
  Age: 54 Year
  Sex: Female

DRUGS (2)
  1. METHADOSE [Suspect]
     Indication: PAIN
     Dosage: UNK
     Route: 065
  2. COPAXONE [Suspect]
     Indication: MULTIPLE SCLEROSIS
     Dosage: UNK
     Route: 065
     Dates: start: 20130411

REACTIONS (6)
  - Drug withdrawal syndrome [Unknown]
  - Contrast media allergy [Unknown]
  - Urinary tract infection [Unknown]
  - Implant site infection [Unknown]
  - Palpitations [Unknown]
  - Chest pain [Not Recovered/Not Resolved]
